FAERS Safety Report 6044987-2 (Version None)
Quarter: 2009Q1

REPORT INFORMATION
  Report Type: 
  Country: None (occurrence: None)
  Receive Date: 20090116
  Receipt Date: 20090116
  Transmission Date: 20090719
  Serious: Yes (Hospitalization)
  Sender: FDA-Public Use
  Company Number: None

PATIENT
  Sex: Female
  Weight: 79 kg

DRUGS (1)
  1. DEMEROL [Suspect]
     Indication: PAIN
     Dosage: 50 MG Q3H PRN IV
     Route: 042

REACTIONS (1)
  - CONVULSION [None]
